FAERS Safety Report 4988287-8 (Version None)
Quarter: 2006Q2

REPORT INFORMATION
  Report Type: 
  Country: None (occurrence: None)
  Receive Date: 20060425
  Receipt Date: 20060410
  Transmission Date: 20061013
  Serious: Yes (Other)
  Sender: FDA-Public Use
  Company Number: 2006033847

PATIENT
  Age: 57 Year
  Sex: Male
  Weight: 93.8946 kg

DRUGS (9)
  1. VIAGRA [Suspect]
     Indication: SEXUAL DYSFUNCTION
     Dosage: 100 MG
     Dates: start: 19980515, end: 20001012
  2. FOLIC ACID [Concomitant]
  3. PRILOSEC [Concomitant]
  4. ASPIRIN [Concomitant]
  5. ASCORBIC ACID [Concomitant]
  6. VITAMIN E [Concomitant]
  7. SELENIUM SULFIDE [Concomitant]
  8. MULTIVITAMIN [Concomitant]
  9. WELLBUTRIN [Concomitant]

REACTIONS (22)
  - ALTERED VISUAL DEPTH PERCEPTION [None]
  - BALANCE DISORDER [None]
  - BLINDNESS UNILATERAL [None]
  - CHEST PAIN [None]
  - CHOROID NEOPLASM [None]
  - CORNEAL OPACITY [None]
  - GAIT DISTURBANCE [None]
  - HYPOACUSIS [None]
  - IMPAIRED DRIVING ABILITY [None]
  - INJURY [None]
  - MELANOCYTIC NAEVUS [None]
  - NIGHT BLINDNESS [None]
  - OPTIC ATROPHY [None]
  - OPTIC DISC DISORDER [None]
  - OPTIC ISCHAEMIC NEUROPATHY [None]
  - PUPILLARY REFLEX IMPAIRED [None]
  - RETINAL DEPIGMENTATION [None]
  - RETINAL DISORDER [None]
  - RETINAL SCAR [None]
  - RETINOPATHY [None]
  - VISUAL FIELD DEFECT [None]
  - VITREOUS DISORDER [None]
